FAERS Safety Report 15514944 (Version 3)
Quarter: 2018Q4

REPORT INFORMATION
  Report Type: Report from Study
  Country: NL (occurrence: NL)
  Receive Date: 20181017
  Receipt Date: 20181106
  Transmission Date: 20190205
  Serious: Yes (Other)
  Sender: FDA-Public Use
  Company Number: NL-IPSEN BIOPHARMACEUTICALS, INC.-2018-15607

PATIENT
  Age: 71 Year
  Sex: Male

DRUGS (1)
  1. SOMATULINE AUTOSOLUTION 120MG [Suspect]
     Active Substance: LANREOTIDE ACETATE
     Indication: NEUROENDOCRINE TUMOUR
     Route: 058
     Dates: start: 20180913

REACTIONS (4)
  - Fatigue [Recovered/Resolved]
  - Syncope [Recovered/Resolved]
  - Inappropriate schedule of product administration [Unknown]
  - Diarrhoea [Not Recovered/Not Resolved]

NARRATIVE: CASE EVENT DATE: 20180918
